FAERS Safety Report 9838111 (Version 1)
Quarter: 2013Q4

REPORT INFORMATION
  Report Type: Spontaneous
  Country: US (occurrence: None)
  Receive Date: 20131205
  Receipt Date: 20131205
  Transmission Date: 20140711
  Serious: Yes (Hospitalization)
  Sender: FDA-Public Use
  Company Number: 163-POMAL-13092207

PATIENT
  Age: 70 Year
  Sex: Female

DRUGS (9)
  1. POMALYST (POMALIDOMIDE) (4 MILLIGRAM, CAPSULES) [Suspect]
     Indication: PLASMA CELL MYELOMA
     Dosage: 1 IN 1 D
     Route: 048
     Dates: start: 201308, end: 2013
  2. CYMBALTA (DULOXETINE HYDROCHLORIDE) [Concomitant]
  3. BENZONATATE (BENZONATATE) [Concomitant]
  4. TRAMADOL HCL [Concomitant]
  5. DESYREL (TRAZODONE HYDROCHLORIDE) [Concomitant]
  6. PROZAC (FLUOXETINE HYDROCHLORIDE) [Concomitant]
  7. COUMADIN (WARFARIN SODIUM) [Concomitant]
  8. LASIX (FUROSEMIDE) [Concomitant]
  9. SPIRIVA (TIOTROPIUM BROMIDE) [Concomitant]

REACTIONS (2)
  - Pneumonia [None]
  - Leukopenia [None]
